FAERS Safety Report 8402345-7 (Version None)
Quarter: 2012Q2

REPORT INFORMATION
  Report Type: 
  Country: None (occurrence: None)
  Receive Date: 20120529
  Receipt Date: 20120516
  Transmission Date: 20120825
  Serious: Yes (Other)
  Sender: FDA-Public Use
  Company Number: DSA_47131_2011

PATIENT
  Age: 72 Year
  Sex: Male

DRUGS (13)
  1. CARDIZEM CD [Suspect]
     Indication: ARRHYTHMIA
     Dosage: (120 MG QD ORAL)
     Route: 048
     Dates: start: 20110504, end: 20110527
  2. THIAMINE [Concomitant]
  3. FRUSEMIDE /00032601/ [Concomitant]
  4. WARFARIN SODIUM [Concomitant]
  5. CHOLECALCIFEROL [Concomitant]
  6. BENZBROMARONE [Concomitant]
  7. PREDNISONE [Concomitant]
  8. FOLIC ACID [Concomitant]
  9. AZATHIOPRINE [Concomitant]
  10. ALENDRONATE [Concomitant]
  11. DIGOXIN [Concomitant]
  12. METOPROLOL TARTRATE [Concomitant]
  13. COLCHICINE [Concomitant]

REACTIONS (7)
  - CONFUSIONAL STATE [None]
  - HALLUCINATION [None]
  - IMPRISONMENT [None]
  - AMNESIA [None]
  - INCORRECT DOSE ADMINISTERED [None]
  - IMPAIRED DRIVING ABILITY [None]
  - ALCOHOL POISONING [None]
